FAERS Safety Report 10751666 (Version 1)
Quarter: 2015Q1

REPORT INFORMATION
  Report Type: Spontaneous
  Country: US (occurrence: US)
  Receive Date: 20150130
  Receipt Date: 20150130
  Transmission Date: 20150721
  Serious: No
  Sender: FDA-Public Use
  Company Number: US-BAYER-2015-010320

PATIENT
  Age: 81 Year
  Sex: Female
  Weight: 90 kg

DRUGS (5)
  1. ALEVE [Suspect]
     Active Substance: NAPROXEN SODIUM
     Dosage: UNK
     Route: 048
  2. VITAMIN D3 [Concomitant]
     Active Substance: CHOLECALCIFEROL
     Dosage: UNK
  3. METOPROLOL [Concomitant]
     Active Substance: METOPROLOL
     Dosage: UNK
  4. STRESS B COMPLEX [MINERALS NOS,VITAMINS NOS] [Concomitant]
  5. CITRACAL CALCIUM + D SLOW RELEASE 1200 [Suspect]
     Active Substance: CALCIUM CITRATE
     Dosage: 1 DF, QD WITH FOOD
     Route: 048
     Dates: start: 20150102, end: 20150120

REACTIONS (3)
  - Dyspepsia [Recovered/Resolved]
  - Incorrect dose administered [None]
  - Adverse drug reaction [None]

NARRATIVE: CASE EVENT DATE: 20150118
